FAERS Safety Report 8112264-1 (Version None)
Quarter: 2012Q1

REPORT INFORMATION
  Report Type: 
  Country: None (occurrence: None)
  Receive Date: 20120203
  Receipt Date: 20120203
  Transmission Date: 20120608
  Serious: Yes (Death, Hospitalization)
  Sender: FDA-Public Use
  Company Number: None

PATIENT
  Age: 33 Year
  Sex: Female
  Weight: 60.9 kg

DRUGS (1)
  1. BEVACIZUMAB [Suspect]
     Indication: OLIGODENDROGLIOMA
     Dosage: BEVACIZUMAB -10MG/KG- 700MG
     Route: 042
     Dates: start: 20120105, end: 20120128

REACTIONS (3)
  - CONFUSIONAL STATE [None]
  - FALL [None]
  - APHASIA [None]
